FAERS Safety Report 5209742-1 (Version None)
Quarter: 2007Q1

REPORT INFORMATION
  Report Type: 
  Country: None (occurrence: None)
  Receive Date: 20070116
  Receipt Date: 20070108
  Transmission Date: 20070707
  Serious: Yes (Death, Hospitalization)
  Sender: FDA-Public Use
  Company Number: US-ABBOTT-06P-163-0338387-00

PATIENT
  Sex: Female

DRUGS (7)
  1. HUMIRA [Suspect]
     Indication: RHEUMATOID ARTHRITIS
     Route: 058
     Dates: start: 20040801, end: 20060801
  2. GOLD [Concomitant]
     Indication: RHEUMATOID ARTHRITIS
     Route: 050
  3. HYDROXYCHLOROQUINE PHOSPHATE [Concomitant]
     Indication: RHEUMATOID ARTHRITIS
     Route: 048
  4. PREDNISONE TAB [Concomitant]
     Indication: RHEUMATOID ARTHRITIS
     Route: 048
  5. MORPHINE [Concomitant]
     Indication: PAIN
     Route: 042
  6. MORPHINE [Concomitant]
  7. MORPHINE [Concomitant]
     Dosage: SR

REACTIONS (3)
  - COMA [None]
  - LUNG CANCER METASTATIC [None]
  - PAIN [None]
